FAERS Safety Report 20481940 (Version 1)
Quarter: 2022Q1

REPORT INFORMATION
  Report Type: Spontaneous
  Country: US (occurrence: US)
  Receive Date: 20220216
  Receipt Date: 20220216
  Transmission Date: 20220423
  Serious: No
  Sender: FDA-Public Use
  Company Number: US-PFIZER INC-2021744983

PATIENT
  Age: 70 Year

DRUGS (1)
  1. GABAPENTIN [Suspect]
     Active Substance: GABAPENTIN
     Dosage: UNK

REACTIONS (4)
  - Drug hypersensitivity [Unknown]
  - Arthralgia [Unknown]
  - Cheilitis [Unknown]
  - Swelling face [Unknown]
